FAERS Safety Report 19024996 (Version 1)
Quarter: 2021Q1

REPORT INFORMATION
  Report Type: Spontaneous
  Country: US (occurrence: US)
  Receive Date: 20210317
  Receipt Date: 20210317
  Transmission Date: 20210420
  Serious: Yes (Other)
  Sender: FDA-Public Use
  Company Number: None

PATIENT
  Age: 46 Year
  Sex: Female
  Weight: 67.5 kg

DRUGS (33)
  1. ABART [Concomitant]
  2. VITAMIN D+K [Concomitant]
  3. HYLAND^S KALI MUR [Concomitant]
  4. GLUTASHIELD [Concomitant]
  5. ORTHOMEGA FISH OIL [Concomitant]
  6. L THEANINE (THEANINE) [Concomitant]
     Active Substance: THEANINE
  7. AL COMPLEX [Concomitant]
  8. SAMENTO [Concomitant]
  9. MSM [Concomitant]
     Active Substance: DIMETHYL SULFONE
  10. MERIVA [Concomitant]
     Active Substance: HERBALS\TURMERIC
  11. MEGA B [Concomitant]
     Active Substance: VITAMINS
  12. LITHIUM OROTATE [Concomitant]
     Active Substance: LITHIUM OROTATE
  13. DIGESTZYME [Concomitant]
  14. PANTOTHENIC ACID [Concomitant]
     Active Substance: PANTOTHENIC ACID
  15. ABAB [Concomitant]
  16. COENZYME Q10 [Concomitant]
     Active Substance: DIETARY SUPPLEMENT\UBIDECARENONE
  17. ADRENEVIVE [Concomitant]
  18. GLUTATHIONE [Concomitant]
     Active Substance: GLUTATHIONE
  19. ARMOUR THYROID [Suspect]
     Active Substance: THYROID, PORCINE
     Indication: HYPOTHYROIDISM
     Dosage: ?          QUANTITY:1 TABLET(S);?
     Route: 048
  20. TICK RECOVERY POWDER [Concomitant]
  21. DIAPLEX [Concomitant]
  22. ORTHOBIOTIC [Concomitant]
  23. IMMUPLEX [Concomitant]
  24. IRON [Concomitant]
     Active Substance: IRON
  25. HYLAND^S PHOSPHATES [Concomitant]
  26. ARMOUR THYROID [Suspect]
     Active Substance: THYROID, PORCINE
     Indication: HYPOTHYROIDISM
     Dosage: ?          QUANTITY:1 TABLET(S);?
     Route: 048
  27. ARMOUR THYROID [Concomitant]
     Active Substance: THYROID, PORCINE
  28. BANDEROL [Concomitant]
  29. WOMEN^S MULTIVITAMIN [Concomitant]
  30. BLACK WALNUT (JUGLANS NIGRA POLLEN) [Concomitant]
     Active Substance: JUGLANS NIGRA POLLEN
  31. LIGAPLEX [Concomitant]
  32. CRYPTOLEPIS [Concomitant]
  33. VITAMIN D3 [Concomitant]
     Active Substance: CHOLECALCIFEROL

REACTIONS (5)
  - Hypoaesthesia [None]
  - Palpitations [None]
  - Dizziness [None]
  - Dyspnoea [None]
  - Feeling abnormal [None]

NARRATIVE: CASE EVENT DATE: 20210316
